FAERS Safety Report 4723517-9 (Version None)
Quarter: 2005Q3

REPORT INFORMATION
  Report Type: 
  Country: None (occurrence: None)
  Receive Date: 20050721
  Receipt Date: 20050721
  Transmission Date: 20060218
  Serious: Yes (Disabling)
  Sender: FDA-Public Use
  Company Number: None

PATIENT
  Age: 34 Year
  Sex: Female
  Weight: 53.5244 kg

DRUGS (1)
  1. GENTAMIACIN [Suspect]

REACTIONS (1)
  - VESTIBULAR DISORDER [None]
